FAERS Safety Report 15189304 (Version 1)
Quarter: 2018Q3

REPORT INFORMATION
  Report Type: Spontaneous
  Country: US (occurrence: US)
  Receive Date: 20180724
  Receipt Date: 20180724
  Transmission Date: 20181010
  Serious: Yes (Hospitalization)
  Sender: FDA-Public Use
  Company Number: US-CIPLA LTD.-2018US20255

PATIENT

DRUGS (1)
  1. LEVOFLOXACIN. [Suspect]
     Active Substance: LEVOFLOXACIN
     Indication: LEGIONELLA TEST POSITIVE
     Dosage: UNK
     Route: 065

REACTIONS (2)
  - Acidosis [Unknown]
  - Acute respiratory distress syndrome [Unknown]
